FAERS Safety Report 23946950 (Version 1)
Quarter: 2024Q2

REPORT INFORMATION
  Report Type: Spontaneous
  Country: US (occurrence: None)
  Receive Date: 20240606
  Receipt Date: 20240606
  Transmission Date: 20240716
  Serious: No
  Sender: FDA-Public Use
  Company Number: None

PATIENT
  Age: 20 Year
  Sex: Female
  Weight: 60.75 kg

DRUGS (6)
  1. HYDROXYZINE HYDROCHLORIDE [Suspect]
     Active Substance: HYDROXYZINE HYDROCHLORIDE
     Indication: Anxiety
     Dosage: OTHER QUANTITY : 1 TABLET(S);?FREQUENCY : AS NEEDED;?
     Route: 048
     Dates: start: 20210301, end: 20240601
  2. ADDERALL [Concomitant]
     Active Substance: AMPHETAMINE ASPARTATE\AMPHETAMINE SULFATE\DEXTROAMPHETAMINE SACCHARATE\DEXTROAMPHETAMINE SULFATE
  3. BUPROPION [Concomitant]
  4. METOPROLOL [Concomitant]
     Active Substance: METOPROLOL
  5. DROPSPIRENONE [Concomitant]
  6. VIBERZI [Concomitant]
     Active Substance: ELUXADOLINE

REACTIONS (4)
  - Sinus tachycardia [None]
  - Pruritus [None]
  - Erythema [None]
  - Withdrawal syndrome [None]

NARRATIVE: CASE EVENT DATE: 20240603
